FAERS Safety Report 5929973-2 (Version None)
Quarter: 2008Q4

REPORT INFORMATION
  Report Type: 
  Country: None (occurrence: None)
  Receive Date: 20081024
  Receipt Date: 20081014
  Transmission Date: 20090506
  Serious: Yes (Disabling)
  Sender: FDA-Public Use
  Company Number: GB-PFIZER INC-2008076059

PATIENT
  Sex: Female
  Weight: 67 kg

DRUGS (7)
  1. LIPITOR [Suspect]
     Indication: BLOOD CHOLESTEROL INCREASED
     Route: 048
  2. STATINS [Suspect]
  3. CAPTOPRIL [Concomitant]
  4. NABUMETONE [Concomitant]
     Dates: start: 19900101
  5. BENDROFLUAZIDE [Concomitant]
  6. NICORANDIL [Concomitant]
     Dates: start: 20050101
  7. CLOPIDOGREL [Concomitant]
     Dates: start: 20050101

REACTIONS (6)
  - ARTHRALGIA [None]
  - ASTHENIA [None]
  - HYPOKINESIA [None]
  - MUSCLE SPASTICITY [None]
  - MUSCULAR WEAKNESS [None]
  - MYALGIA [None]
